FAERS Safety Report 5466799-0 (Version None)
Quarter: 2007Q3

REPORT INFORMATION
  Report Type: 
  Country: None (occurrence: None)
  Receive Date: 20070924
  Receipt Date: 20070924
  Transmission Date: 20080115
  Serious: Yes (Other)
  Sender: FDA-Public Use
  Company Number: None

PATIENT
  Age: 54 Year
  Sex: Female
  Weight: 82.1011 kg

DRUGS (1)
  1. REDI-CAT   1.3%W/V,1.2% W/W  E-Z EM [Suspect]
     Indication: COMPUTERISED TOMOGRAM ABDOMEN
     Dosage: 450 ML TWICE PO
     Route: 048
     Dates: start: 20070920, end: 20070921

REACTIONS (2)
  - ARTHRALGIA [None]
  - TIC [None]
